FAERS Safety Report 8354244 (Version 3)
Quarter: 2012Q4

REPORT INFORMATION
  Report Type: 
  Country: DE (occurrence: DE)
  Receive Date: 20120125
  Receipt Date: 20121004
  Transmission Date: 20130627
  Serious: Yes (Life-Threatening, Hospitalization)
  Sender: FDA-Public Use
  Company Number: PHHY2012DE006017

PATIENT
  Age: 47 Year
  Sex: Male
  Weight: 91 kg

DRUGS (1)
  1. LEPONEX [Suspect]
     Indication: SCHIZOPHRENIA, PARANOID TYPE
     Dosage: 500 mg
     Route: 048

REACTIONS (5)
  - Appendicitis perforated [Unknown]
  - Impaired healing [Unknown]
  - C-reactive protein increased [Unknown]
  - Body temperature increased [Unknown]
  - White blood cell count increased [Unknown]
